FAERS Safety Report 22625636 (Version 3)
Quarter: 2024Q1

REPORT INFORMATION
  Report Type: Spontaneous
  Country: US (occurrence: US)
  Receive Date: 20230621
  Receipt Date: 20240208
  Transmission Date: 20240410
  Serious: No
  Sender: FDA-Public Use
  Company Number: US-PFIZER INC-PV202300106468

PATIENT
  Age: 36 Year
  Sex: Female

DRUGS (2)
  1. NURTEC ODT [Suspect]
     Active Substance: RIMEGEPANT SULFATE
     Indication: Headache
     Dosage: 75 MG, (TAKE ONE TABLET BY MOUTH AT ONSET OF HEADACHE OR EVERY OTHER DAY FOR PREVENTION)
     Route: 048
  2. NURTEC ODT [Suspect]
     Active Substance: RIMEGEPANT SULFATE
     Indication: Migraine

REACTIONS (3)
  - Visual impairment [Unknown]
  - Chromatopsia [Unknown]
  - Drug ineffective [Unknown]
